FAERS Safety Report 20551776 (Version 1)
Quarter: 2022Q1

REPORT INFORMATION
  Report Type: Spontaneous
  Country: US (occurrence: None)
  Receive Date: 20220304
  Receipt Date: 20220304
  Transmission Date: 20220423
  Serious: No
  Sender: FDA-Public Use
  Company Number: 2022A074868

PATIENT
  Sex: Female
  Weight: 56.7 kg

DRUGS (1)
  1. SYMBICORT [Suspect]
     Active Substance: BUDESONIDE\FORMOTEROL FUMARATE DIHYDRATE
     Indication: Asthma
     Dosage: ONE INHALATION AS NEEDED AS REQUIRED
     Route: 055

REACTIONS (10)
  - COVID-19 [Recovered/Resolved]
  - Wheezing [Recovered/Resolved]
  - Vomiting [Recovered/Resolved]
  - Diarrhoea [Recovered/Resolved]
  - Asthenia [Recovered/Resolved]
  - Gait disturbance [Recovered/Resolved]
  - Weight decreased [Unknown]
  - Product use issue [Unknown]
  - Drug ineffective [Unknown]
  - Inability to afford medication [Unknown]
